FAERS Safety Report 5905925-3 (Version None)
Quarter: 2008Q4

REPORT INFORMATION
  Report Type: 
  Country: None (occurrence: None)
  Receive Date: 20081001
  Receipt Date: 20081001
  Transmission Date: 20090506
  Serious: Yes (Life-Threatening, Hospitalization, Other)
  Sender: FDA-Public Use
  Company Number: None

PATIENT
  Age: 35 Year
  Sex: Female
  Weight: 103.8737 kg

DRUGS (1)
  1. BACTRIM DS [Suspect]
     Indication: URINARY TRACT INFECTION
     Dosage: 1 TABLET EVERY 12 HRS PO
     Route: 048
     Dates: start: 20080825, end: 20080903

REACTIONS (3)
  - ACTIVITIES OF DAILY LIVING IMPAIRED [None]
  - PAIN IN EXTREMITY [None]
  - STEVENS-JOHNSON SYNDROME [None]
